FAERS Safety Report 8405717-X (Version None)
Quarter: 2012Q2

REPORT INFORMATION
  Report Type: 
  Country: None (occurrence: None)
  Receive Date: 20120604
  Receipt Date: 20120523
  Transmission Date: 20120825
  Serious: Yes (Other)
  Sender: FDA-Public Use
  Company Number: IL-ELI_LILLY_AND_COMPANY-IL201205009711

PATIENT
  Age: 79 Year
  Sex: Male

DRUGS (2)
  1. HUMALOG MIX 50/50 [Suspect]
  2. HUMALOG [Suspect]

REACTIONS (2)
  - DRUG DISPENSING ERROR [None]
  - HYPOGLYCAEMIC UNCONSCIOUSNESS [None]
